FAERS Safety Report 4829183-6 (Version None)
Quarter: 2005Q4

REPORT INFORMATION
  Report Type: 
  Country: None (occurrence: None)
  Receive Date: 20051028
  Receipt Date: 20050803
  Transmission Date: 20060501
  Serious: No
  Sender: FDA-Public Use
  Company Number: COT_0155_2005

PATIENT
  Age: 47 Year
  Sex: 0
  Weight: 59.8748 kg

DRUGS (13)
  1. VENTAVIS [Suspect]
     Indication: PULMONARY HYPERTENSION
     Dosage: 2. MCG IH
     Route: 055
  2. VENTAVIS [Suspect]
     Indication: PULMONARY HYPERTENSION
     Dosage: 5 MCG IH
     Route: 055
  3. SPIRIVA [Concomitant]
  4. FOSAMAX [Concomitant]
  5. ALVALOX [Concomitant]
  6. SEROQUEL [Concomitant]
  7. PROLASTIN [Concomitant]
  8. LITHIUM [Concomitant]
  9. POTASSIUM CHLORIDE [Concomitant]
  10. LASIX [Concomitant]
  11. SINGULAIR [Concomitant]
  12. COMBIVENT [Concomitant]
  13. ALBUTEROL [Concomitant]

REACTIONS (2)
  - COUGH [None]
  - DIZZINESS [None]
